FAERS Safety Report 17454454 (Version 5)
Quarter: 2023Q4

REPORT INFORMATION
  Report Type: Report from Study
  Country: JP (occurrence: JP)
  Receive Date: 20200225
  Receipt Date: 20231121
  Transmission Date: 20240110
  Serious: Yes (Hospitalization, Congenital Anomaly, Other)
  Sender: FDA-Public Use
  Company Number: JP-ALEXION-A202002120

PATIENT
  Age: 0 Year
  Sex: Female
  Weight: 6.8 kg

DRUGS (11)
  1. STRENSIQ [Suspect]
     Active Substance: ASFOTASE ALFA
     Indication: Hypophosphatasia
     Dosage: 2 MG/KG, TIW
     Route: 058
     Dates: start: 20200127, end: 20200814
  2. STRENSIQ [Suspect]
     Active Substance: ASFOTASE ALFA
     Dosage: 1 MILLIGRAM/KILOGRAM
     Route: 065
     Dates: start: 20200814
  3. VITAMIN B6 [Concomitant]
     Active Substance: PYRIDOXINE HYDROCHLORIDE
     Indication: Hypophosphatasia
     Dosage: 3.3MG TO 8MG, TID
     Route: 048
     Dates: start: 20200128
  4. VITAMIN B6 [Concomitant]
     Active Substance: PYRIDOXINE HYDROCHLORIDE
     Dosage: 1.66 UNK, TID
     Route: 048
     Dates: end: 20201210
  5. CALCIUM LACTATE [Concomitant]
     Active Substance: CALCIUM LACTATE
     Indication: Hypophosphatasia
     Dosage: 0.1G TO 0.2G, 8 TIMES DAILY
     Route: 048
     Dates: start: 20200204, end: 20200607
  6. CERCINE [Concomitant]
     Active Substance: DIAZEPAM
     Indication: Prophylaxis
     Dosage: 0.5ML, BID
     Route: 048
     Dates: start: 20200216, end: 20200328
  7. RIKKUNSHITO                        /08041001/ [Concomitant]
     Indication: Vomiting
     Dosage: 0.1 DF, TID
     Route: 048
     Dates: start: 20200402
  8. RIKKUNSHITO                        /08041001/ [Concomitant]
     Indication: Hypophosphatasia
     Dosage: 0.5 G, TID
     Route: 048
     Dates: start: 20200708, end: 20201210
  9. HERBALS [Concomitant]
     Active Substance: HERBALS
     Indication: Hypophosphatasia
     Dosage: 0.1 DF, TID
     Route: 048
     Dates: start: 20200404
  10. HERBALS [Concomitant]
     Active Substance: HERBALS
     Indication: Vomiting
     Dosage: 0.5 G, TID
     Route: 048
     Dates: start: 20200708, end: 20201210
  11. BUDESONIDE [Concomitant]
     Active Substance: BUDESONIDE
     Indication: Hypophosphatasia
     Dosage: 0.25 MG, BID
     Route: 048

REACTIONS (13)
  - Respiratory disorder [Recovering/Resolving]
  - Gastric volvulus [Recovered/Resolved]
  - Vomiting [Recovering/Resolving]
  - Growth disorder [Recovered/Resolved]
  - Developmental delay [Recovered/Resolved with Sequelae]
  - Chest X-ray abnormal [Recovering/Resolving]
  - Hyperphosphataemia [Recovering/Resolving]
  - Blood immunoglobulin G decreased [Unknown]
  - Anaemia [Recovering/Resolving]
  - Hypercalciuria [Unknown]
  - Audiogram abnormal [Recovered/Resolved]
  - Sputum retention [Recovering/Resolving]
  - Hypocalcaemia [Recovering/Resolving]

NARRATIVE: CASE EVENT DATE: 20200128
